FAERS Safety Report 23468653 (Version 1)
Quarter: 2024Q1

REPORT INFORMATION
  Report Type: Report from Study
  Country: US (occurrence: US)
  Receive Date: 20240202
  Receipt Date: 20240202
  Transmission Date: 20240410
  Serious: Yes (Hospitalization, Other)
  Sender: FDA-Public Use
  Company Number: US-ABBVIE-5610877

PATIENT
  Age: 52 Year
  Sex: Male
  Weight: 113 kg

DRUGS (8)
  1. HUMIRA [Suspect]
     Active Substance: ADALIMUMAB
     Indication: Psoriatic arthropathy
     Route: 058
     Dates: start: 20090101
  2. HUMIRA [Suspect]
     Active Substance: ADALIMUMAB
     Indication: Psoriasis
     Dosage: UNKNOWN
     Route: 058
     Dates: start: 20230101, end: 202308
  3. HUMIRA [Suspect]
     Active Substance: ADALIMUMAB
     Dosage: UNKNOWN
     Route: 058
     Dates: start: 202308, end: 202308
  4. HUMIRA [Suspect]
     Active Substance: ADALIMUMAB
     Dosage: START DATE WAS 2023
     Route: 058
     Dates: end: 20231011
  5. HUMIRA [Suspect]
     Active Substance: ADALIMUMAB
     Dosage: UNKNOWN
     Route: 058
     Dates: start: 2002
  6. HUMIRA [Suspect]
     Active Substance: ADALIMUMAB
     Dosage: UNKNOWN
     Route: 058
     Dates: start: 2019, end: 2021
  7. HUMIRA [Suspect]
     Active Substance: ADALIMUMAB
     Dosage: START DATE WAS 2023
     Route: 058
     Dates: end: 20231212
  8. HUMIRA [Suspect]
     Active Substance: ADALIMUMAB
     Dosage: UNKNOWN
     Route: 058
     Dates: start: 202206, end: 2023

REACTIONS (9)
  - Osteoarthritis [Unknown]
  - Central nervous system vasculitis [Unknown]
  - Cerebrovascular accident [Unknown]
  - CSF white blood cell count increased [Unknown]
  - Aphasia [Unknown]
  - COVID-19 [Recovered/Resolved]
  - Psoriasis [Unknown]
  - COVID-19 [Recovered/Resolved]
  - COVID-19 [Recovered/Resolved]

NARRATIVE: CASE EVENT DATE: 20200901
